FAERS Safety Report 18496570 (Version 1)
Quarter: 2020Q4

REPORT INFORMATION
  Report Type: Spontaneous
  Country: US (occurrence: US)
  Receive Date: 20201112
  Receipt Date: 20201112
  Transmission Date: 20210114
  Serious: Yes (Life-Threatening, Hospitalization, Other)
  Sender: FDA-Public Use
  Company Number: US-009507513-2011USA000730

PATIENT
  Age: 19977 Day
  Sex: Male
  Weight: 92.1 kg

DRUGS (11)
  1. INSULIN GLARGINE [Concomitant]
     Active Substance: INSULIN GLARGINE
     Dosage: 100 UNIT/ML. 12 UNITS INTO THE SKIN EVERY MORNING
  2. PRAVACHOL [Concomitant]
     Active Substance: PRAVASTATIN SODIUM
  3. GLUCOPHAGE [Concomitant]
     Active Substance: METFORMIN HYDROCHLORIDE
     Dosage: 500 MG 2 DF TWO TIMES A DAY
     Route: 048
  4. FARXIGA [Suspect]
     Active Substance: DAPAGLIFLOZIN PROPANEDIOL
     Indication: TYPE 2 DIABETES MELLITUS
     Dosage: 5 MILLIGRAM, QD
     Route: 048
     Dates: start: 20180116
  5. PRINIVIL [Suspect]
     Active Substance: LISINOPRIL
     Route: 048
  6. MOTRIN [Concomitant]
     Active Substance: IBUPROFEN
     Dosage: EVERY 6 HOURS AS NEEDED.
     Route: 048
  7. FARXIGA [Suspect]
     Active Substance: DAPAGLIFLOZIN PROPANEDIOL
     Dosage: 10 MILLIGRAM, QD
     Route: 048
     Dates: start: 20180623, end: 20180806
  8. NEURONTIN [Concomitant]
     Active Substance: GABAPENTIN
     Indication: NEURALGIA
  9. REVATIO [Concomitant]
     Active Substance: SILDENAFIL CITRATE
  10. CHOLECALCIFEROL [Concomitant]
     Active Substance: CHOLECALCIFEROL
     Dosage: 1000 UNITS DAILY
     Route: 048
  11. GLUCOPHAGE [Concomitant]
     Active Substance: METFORMIN HYDROCHLORIDE
     Indication: DIABETES MELLITUS
     Dosage: 1000 MG, QD
     Route: 048
     Dates: start: 20120214, end: 20180806

REACTIONS (8)
  - Hyperkalaemia [Unknown]
  - Tachycardia [Unknown]
  - Constipation [Unknown]
  - Large intestinal obstruction [Unknown]
  - Dehydration [Unknown]
  - Ketoacidosis [Recovered/Resolved]
  - Abdominal tenderness [Unknown]
  - Chest pain [Unknown]

NARRATIVE: CASE EVENT DATE: 20180806
